FAERS Safety Report 6029342-3 (Version None)
Quarter: 2009Q1

REPORT INFORMATION
  Report Type: 
  Country: None (occurrence: None)
  Receive Date: 20090102
  Receipt Date: 20081219
  Transmission Date: 20090719
  Serious: Yes (Hospitalization)
  Sender: FDA-Public Use
  Company Number: 2008AL008246

PATIENT
  Age: 81 Year
  Sex: Female
  Weight: 48.5349 kg

DRUGS (16)
  1. DIGOXIN [Suspect]
     Dosage: 0.25MG, DAILY, PO
     Route: 048
     Dates: start: 20071120
  2. ACTONEL [Concomitant]
  3. CARTIA XT [Concomitant]
  4. CITRACAL [Concomitant]
  5. COUMADIN [Concomitant]
  6. FOLIC ACID [Concomitant]
  7. LEVOXYL [Concomitant]
  8. METOPROLOL SUCCINATE EXTENDED RELEASE [Concomitant]
  9. PERCOCET [Concomitant]
  10. SUPER B COMPLEX [Concomitant]
  11. TRAZADONE HYDROCHLORIDE [Concomitant]
  12. ASCORBIC ACID [Concomitant]
  13. VITAMIN D3 [Concomitant]
  14. BENICAR HCT [Concomitant]
  15. VERAPAMIL ER [Concomitant]
  16. COUMADIN [Concomitant]

REACTIONS (25)
  - AORTIC VALVE SCLEROSIS [None]
  - ASTHENIA [None]
  - ATRIAL FIBRILLATION [None]
  - ATRIAL FLUTTER [None]
  - ATRIOVENTRICULAR BLOCK FIRST DEGREE [None]
  - BLOOD POTASSIUM DECREASED [None]
  - CAROTID ARTERY STENOSIS [None]
  - CORONARY ARTERY BYPASS [None]
  - DIZZINESS [None]
  - DYSPHAGIA [None]
  - DYSPNOEA [None]
  - FATIGUE [None]
  - GAIT DISTURBANCE [None]
  - HEPATIC FUNCTION ABNORMAL [None]
  - HYPONATRAEMIA [None]
  - LEUKOCYTOSIS [None]
  - OEDEMA PERIPHERAL [None]
  - PERICARDIAL EFFUSION [None]
  - PULMONARY HYPERTENSION [None]
  - SICK SINUS SYNDROME [None]
  - SINUS ARRHYTHMIA [None]
  - SINUS BRADYCARDIA [None]
  - SYNCOPE [None]
  - THERAPEUTIC AGENT TOXICITY [None]
  - WEIGHT INCREASED [None]
